FAERS Safety Report 25063770 (Version 3)
Quarter: 2025Q2

REPORT INFORMATION
  Report Type: Report from Study
  Country: IN (occurrence: IN)
  Receive Date: 20250311
  Receipt Date: 20250416
  Transmission Date: 20250717
  Serious: Yes (Death, Hospitalization)
  Sender: ROCHE
  Company Number: IN-ROCHE-10000223585

PATIENT
  Age: 75 Year
  Sex: Male

DRUGS (1)
  1. TECENTRIQ [Suspect]
     Active Substance: ATEZOLIZUMAB
     Indication: Small cell lung cancer metastatic
     Route: 042
     Dates: start: 20241203

REACTIONS (4)
  - Drug ineffective [Unknown]
  - Blood pressure inadequately controlled [Unknown]
  - Mechanical ventilation [Unknown]
  - Death [Fatal]

NARRATIVE: CASE EVENT DATE: 20250304
